FAERS Safety Report 20544653 (Version 1)
Quarter: 2022Q1

REPORT INFORMATION
  Report Type: Spontaneous
  Country: US (occurrence: US)
  Receive Date: 20220303
  Receipt Date: 20220303
  Transmission Date: 20220423
  Serious: No
  Sender: FDA-Public Use
  Company Number: US-SA-SAC20220228000913

PATIENT
  Sex: Female

DRUGS (4)
  1. ALPROLIX [Suspect]
     Active Substance: EFTRENONACOG ALFA
     Indication: Factor IX deficiency
     Dosage: 5000 UNITS (4500 - 5500) SLOW IV PUSH TWICE WEEKLY AND DAILY AS NEEDED
     Route: 042
     Dates: start: 202109
  2. ALPROLIX [Suspect]
     Active Substance: EFTRENONACOG ALFA
     Indication: Factor IX deficiency
     Dosage: 5000 UNITS (4500 - 5500) SLOW IV PUSH TWICE WEEKLY AND DAILY AS NEEDED
     Route: 042
     Dates: start: 202109
  3. ALPROLIX [Suspect]
     Active Substance: EFTRENONACOG ALFA
     Indication: Haemorrhage
  4. ALPROLIX [Suspect]
     Active Substance: EFTRENONACOG ALFA
     Indication: Haemorrhage

REACTIONS (2)
  - Injection site mass [Unknown]
  - Treatment noncompliance [Unknown]
